FAERS Safety Report 14215439 (Version 2)
Quarter: 2018Q1

REPORT INFORMATION
  Report Type: Report from Study
  Country: CA (occurrence: CA)
  Receive Date: 20171122
  Receipt Date: 20180208
  Transmission Date: 20180508
  Serious: Yes (Life-Threatening, Hospitalization, Other)
  Sender: FDA-Public Use
  Company Number: CA-JNJFOC-20171125101

PATIENT
  Age: 86 Year
  Sex: Female
  Weight: 56 kg

DRUGS (13)
  1. METHOTREXATE. [Concomitant]
     Active Substance: METHOTREXATE
     Route: 058
  2. AMYLASE [Concomitant]
     Active Substance: AMYLASE
     Route: 065
  3. PROTEASE [Concomitant]
     Active Substance: PROTEASE
     Route: 065
  4. T3 [Concomitant]
     Active Substance: LIOTHYRONINE SODIUM
     Route: 065
  5. STELARA [Suspect]
     Active Substance: USTEKINUMAB
     Indication: PSORIATIC ARTHROPATHY
     Route: 058
     Dates: start: 201608, end: 20180202
  6. ESOMEPRAZOLE [Concomitant]
     Active Substance: ESOMEPRAZOLE
     Route: 065
  7. LIPASE [Concomitant]
     Active Substance: LIPASE
     Route: 065
  8. RAMIPRIL. [Concomitant]
     Active Substance: RAMIPRIL
     Route: 065
  9. SIMVASTATIN. [Concomitant]
     Active Substance: SIMVASTATIN
     Route: 065
  10. STELARA [Suspect]
     Active Substance: USTEKINUMAB
     Indication: PSORIATIC ARTHROPATHY
     Dosage: STRENGTH = 90 MG
     Route: 058
     Dates: start: 20160817
  11. SODIUM BICARBONATE. [Concomitant]
     Active Substance: SODIUM BICARBONATE
     Route: 065
  12. PROPAFENONE. [Concomitant]
     Active Substance: PROPAFENONE
     Route: 065
  13. CODEINE [Concomitant]
     Active Substance: CODEINE
     Route: 048

REACTIONS (5)
  - Cellulitis [Not Recovered/Not Resolved]
  - Dehydration [Recovered/Resolved]
  - Oesophageal carcinoma [Not Recovered/Not Resolved]
  - Off label use [Unknown]
  - Incorrect dose administered [Unknown]

NARRATIVE: CASE EVENT DATE: 201608
